FAERS Safety Report 8083288-8 (Version None)
Quarter: 2012Q1

REPORT INFORMATION
  Report Type: 
  Country: None (occurrence: None)
  Receive Date: 20120127
  Receipt Date: 20110202
  Transmission Date: 20120608
  Serious: No
  Sender: FDA-Public Use
  Company Number: US-ABBOTT-11P-163-0702611-00

PATIENT
  Sex: Female
  Weight: 112.14 kg

DRUGS (1)
  1. HUMIRA [Suspect]
     Indication: RHEUMATOID ARTHRITIS
     Route: 058

REACTIONS (3)
  - TOOTH ABSCESS [None]
  - GASTRIC INFECTION [None]
  - DRUG DOSE OMISSION [None]
